FAERS Safety Report 7114592-5 (Version None)
Quarter: 2010Q4

REPORT INFORMATION
  Report Type: 
  Country: None (occurrence: None)
  Receive Date: 20101121
  Receipt Date: 20101118
  Transmission Date: 20110411
  Serious: Yes (Other)
  Sender: FDA-Public Use
  Company Number: IT-MILLENNIUM PHARMACEUTICALS, INC.-2010-05812

PATIENT

DRUGS (1)
  1. VELCADE [Suspect]
     Indication: MYELODYSPLASTIC SYNDROME
     Dosage: 1.3 MG/M2, CYCLIC
     Route: 042

REACTIONS (1)
  - ATRIAL FIBRILLATION [None]
